FAERS Safety Report 18500960 (Version 1)
Quarter: 2020Q4

REPORT INFORMATION
  Report Type: Spontaneous
  Country: US (occurrence: US)
  Receive Date: 20201113
  Receipt Date: 20201113
  Transmission Date: 20210114
  Serious: Yes (Other)
  Sender: FDA-Public Use
  Company Number: None

PATIENT
  Sex: Female

DRUGS (6)
  1. POTASSIUM CHLORIDE. [Concomitant]
     Active Substance: POTASSIUM CHLORIDE
  2. PROBIOTIC [Concomitant]
     Active Substance: PROBIOTICS NOS
  3. SYNTHROID [Concomitant]
     Active Substance: LEVOTHYROXINE SODIUM
  4. VITAMIN D3 [Concomitant]
     Active Substance: CHOLECALCIFEROL
  5. CUREL ADVANCED CERAMIDE THERAPY [Concomitant]
     Active Substance: PETROLATUM
  6. LOSARTAN. [Suspect]
     Active Substance: LOSARTAN

REACTIONS (1)
  - Hypoacusis [None]
